FAERS Safety Report 23691094 (Version 2)
Quarter: 2024Q2

REPORT INFORMATION
  Report Type: Report from Study
  Country: US (occurrence: US)
  Receive Date: 20240401
  Receipt Date: 20240509
  Transmission Date: 20240716
  Serious: No
  Sender: FDA-Public Use
  Company Number: US-HORIZON THERAPEUTICS-HZN-2023-010764

PATIENT

DRUGS (10)
  1. TEPEZZA [Suspect]
     Active Substance: TEPROTUMUMAB-TRBW
     Indication: Endocrine ophthalmopathy
     Dosage: 1000 MG, EVERY 3 WEEKS, DOSE1
     Route: 042
     Dates: start: 20210817
  2. TEPEZZA [Suspect]
     Active Substance: TEPROTUMUMAB-TRBW
     Indication: Toxic goitre
     Dosage: 2000 MG, EVERY 3 WEEKS, DOSE 2
     Route: 042
     Dates: start: 20210907
  3. TEPEZZA [Suspect]
     Active Substance: TEPROTUMUMAB-TRBW
     Dosage: 2000 MG, EVERY 3 WEEKS, DOSE 3
     Route: 042
     Dates: start: 20210928
  4. TEPEZZA [Suspect]
     Active Substance: TEPROTUMUMAB-TRBW
     Dosage: 2000 MG, EVERY 3 WEEKS, DOSE 4
     Route: 042
     Dates: start: 20211019
  5. TEPEZZA [Suspect]
     Active Substance: TEPROTUMUMAB-TRBW
     Dosage: 2000 MG, EVERY 3 WEEKS, DOSE 5
     Route: 042
     Dates: start: 20211109
  6. TEPEZZA [Suspect]
     Active Substance: TEPROTUMUMAB-TRBW
     Dosage: 2000 MG, EVERY 3 WEEKS, DOSE 6
     Route: 042
     Dates: start: 20211130
  7. TEPEZZA [Suspect]
     Active Substance: TEPROTUMUMAB-TRBW
     Dosage: 2000 MG, EVERY 3 WEEKS, DOSE 7
     Route: 042
     Dates: start: 20211221
  8. TEPEZZA [Suspect]
     Active Substance: TEPROTUMUMAB-TRBW
     Dosage: 2000 MG, EVERY 3 WEEKS, DOSE 8
     Route: 042
     Dates: start: 20220114
  9. TEPEZZA [Suspect]
     Active Substance: TEPROTUMUMAB-TRBW
     Dosage: SECOND INFUSION, SECOND COURSE
     Route: 042
     Dates: start: 20231120
  10. TEPEZZA [Suspect]
     Active Substance: TEPROTUMUMAB-TRBW
     Dosage: THIRD INFUSION, SECOND COURSE
     Route: 042
     Dates: start: 20231211

REACTIONS (7)
  - Condition aggravated [Unknown]
  - Dysacusis [Unknown]
  - Hypoacusis [Recovering/Resolving]
  - Muscle spasms [Unknown]
  - Tinnitus [Unknown]
  - Muscle spasms [Recovered/Resolved]
  - Off label use [Unknown]

NARRATIVE: CASE EVENT DATE: 20230101
